FAERS Safety Report 7481141-1 (Version None)
Quarter: 2011Q2

REPORT INFORMATION
  Report Type: 
  Country: None (occurrence: None)
  Receive Date: 20110516
  Receipt Date: 20110505
  Transmission Date: 20111010
  Serious: Yes (Hospitalization)
  Sender: FDA-Public Use
  Company Number: US-MUTUAL PHARMACEUTICAL COMPANY, INC.-BCTM20110030

PATIENT
  Age: 73 Year
  Sex: Male

DRUGS (4)
  1. BACTRIM [Suspect]
     Indication: PROSTATITIS
     Route: 065
     Dates: start: 20110101
  2. LEVAQUIN [Suspect]
     Indication: PROSTATITIS
     Route: 065
     Dates: start: 20110101
  3. RAMIPRIL [Concomitant]
     Indication: PRODUCT USED FOR UNKNOWN INDICATION
     Route: 065
  4. ASPIRIN [Concomitant]
     Indication: PRODUCT USED FOR UNKNOWN INDICATION
     Route: 065

REACTIONS (2)
  - SWELLING [None]
  - FLUID RETENTION [None]
